FAERS Safety Report 5392068-3 (Version None)
Quarter: 2007Q3

REPORT INFORMATION
  Report Type: 
  Country: None (occurrence: None)
  Receive Date: 20070720
  Receipt Date: 20070713
  Transmission Date: 20080115
  Serious: Yes (Hospitalization)
  Sender: FDA-Public Use
  Company Number: IT-BAYER-200714024GDS

PATIENT
  Age: 63 Year
  Sex: Female

DRUGS (2)
  1. CARDIOASPIRIN 100 [Suspect]
     Indication: RETINAL VEIN THROMBOSIS
     Dosage: TOTAL DAILY DOSE: 100 MG  UNIT DOSE: 100 MG
     Route: 048
     Dates: start: 20050212, end: 20050220
  2. TICLID [Suspect]
     Indication: RETINAL VEIN THROMBOSIS
     Dosage: TOTAL DAILY DOSE: 250 MG  UNIT DOSE: 250 MG
     Route: 048
     Dates: start: 20050212, end: 20050212

REACTIONS (2)
  - GASTROOESOPHAGEAL REFLUX DISEASE [None]
  - HAEMATEMESIS [None]
